FAERS Safety Report 10509781 (Version 3)
Quarter: 2014Q4

REPORT INFORMATION
  Report Type: Report from Study
  Country: US (occurrence: US)
  Receive Date: 20141010
  Receipt Date: 20141209
  Transmission Date: 20150528
  Serious: Yes (Hospitalization)
  Sender: FDA-Public Use
  Company Number: US-BIOGENIDEC-2012BI059314

PATIENT
  Age: 63 Year
  Sex: Male
  Weight: 106 kg

DRUGS (14)
  1. VALIUM [Concomitant]
     Active Substance: DIAZEPAM
     Route: 048
     Dates: end: 20121204
  2. SALINE FLUSH [Concomitant]
     Active Substance: SODIUM CHLORIDE
     Route: 042
  3. FLOMAX [Concomitant]
     Active Substance: TAMSULOSIN HYDROCHLORIDE
     Route: 048
  4. FLEXERIL [Concomitant]
     Active Substance: CYCLOBENZAPRINE HYDROCHLORIDE
     Route: 048
     Dates: end: 20121204
  5. LEXAPRO [Concomitant]
     Active Substance: ESCITALOPRAM OXALATE
     Route: 048
  6. LASIX [Concomitant]
     Active Substance: FUROSEMIDE
     Route: 048
  7. HEPARIN FLUSH [Concomitant]
     Dates: end: 20121204
  8. MS IR [Concomitant]
     Active Substance: MORPHINE SULFATE
     Route: 048
     Dates: end: 20121204
  9. ALDACTONE [Concomitant]
     Active Substance: SPIRONOLACTONE
     Route: 048
  10. CHRONULAC [Concomitant]
     Active Substance: LACTULOSE
     Route: 048
  11. RFIXFC [Suspect]
     Active Substance: EFTRENONACOG ALFA
     Indication: FACTOR IX DEFICIENCY
     Route: 042
     Dates: start: 20120223
  12. HYDROMORPHONE AND BUPIVACAINE [Concomitant]
     Route: 037
  13. SYNTHROID [Concomitant]
     Active Substance: LEVOTHYROXINE SODIUM
     Route: 048
  14. SENNA-S [Concomitant]
     Active Substance: DOCUSATE SODIUM\SENNOSIDES
     Route: 048

REACTIONS (1)
  - Bacterial sepsis [Recovered/Resolved]

NARRATIVE: CASE EVENT DATE: 20121107
